FAERS Safety Report 24406970 (Version 1)
Quarter: 2024Q4

REPORT INFORMATION
  Report Type: Spontaneous
  Country: US (occurrence: None)
  Receive Date: 20241007
  Receipt Date: 20241007
  Transmission Date: 20250114
  Serious: Yes (Hospitalization, Other)
  Sender: UNICHEM
  Company Number: US-Unichem Pharmaceuticals (USA) Inc-UCM202410-001234

PATIENT
  Age: 57 Year
  Sex: Female

DRUGS (1)
  1. AMLODIPINE [Suspect]
     Active Substance: AMLODIPINE BESYLATE
     Indication: Product used for unknown indication
     Dosage: 87 PILLS OF 10 MG

REACTIONS (10)
  - Acute respiratory distress syndrome [Recovering/Resolving]
  - Non-cardiogenic pulmonary oedema [Recovered/Resolved]
  - Hypoxia [Recovering/Resolving]
  - Impaired insulin secretion [Unknown]
  - Lung infiltration [Recovered/Resolved]
  - Hypotension [Recovered/Resolved]
  - Tachycardia [Recovering/Resolving]
  - Hyperglycaemia [Recovering/Resolving]
  - Toxicity to various agents [Unknown]
  - Overdose [Unknown]
